FAERS Safety Report 5641026-X (Version None)
Quarter: 2008Q1

REPORT INFORMATION
  Report Type: 
  Country: None (occurrence: None)
  Receive Date: 20080131
  Receipt Date: 20071030
  Transmission Date: 20080703
  Serious: No
  Sender: FDA-Public Use
  Company Number: 163-21880-07101744

PATIENT
  Age: 62 Year
  Sex: Male

DRUGS (4)
  1. REVLIMID [Suspect]
     Indication: WALDENSTROM'S MACROGLOBULINAEMIA
     Dosage: 2.5 MG, 1 IN 2 D, ORAL; 5 MG, EVERY 3 DAYS, ORAL; 5 MG, 1 IN 1 D, ORAL
     Route: 048
     Dates: start: 20070807, end: 20070815
  2. REVLIMID [Suspect]
     Indication: WALDENSTROM'S MACROGLOBULINAEMIA
     Dosage: 2.5 MG, 1 IN 2 D, ORAL; 5 MG, EVERY 3 DAYS, ORAL; 5 MG, 1 IN 1 D, ORAL
     Route: 048
     Dates: start: 20070831, end: 20071001
  3. REVLIMID [Suspect]
     Indication: WALDENSTROM'S MACROGLOBULINAEMIA
     Dosage: 2.5 MG, 1 IN 2 D, ORAL; 5 MG, EVERY 3 DAYS, ORAL; 5 MG, 1 IN 1 D, ORAL
     Route: 048
     Dates: start: 20071026
  4. ATENOLOL [Concomitant]

REACTIONS (2)
  - HEADACHE [None]
  - PAIN IN EXTREMITY [None]
